FAERS Safety Report 7319311-5 (Version None)
Quarter: 2011Q1

REPORT INFORMATION
  Report Type: 
  Country: None (occurrence: None)
  Receive Date: 20110228
  Receipt Date: 20100126
  Transmission Date: 20110831
  Serious: No
  Sender: FDA-Public Use
  Company Number: A0841488A

PATIENT
  Age: 59 Year
  Sex: Female

DRUGS (7)
  1. LESCOL [Concomitant]
  2. OMEPRAZOLE [Concomitant]
  3. NIFEDIPINE [Concomitant]
  4. FOLIC ACID [Concomitant]
  5. HYDROCHLOROTHIAZIDE [Concomitant]
  6. ASPIRIN [Concomitant]
  7. LAMICTAL [Suspect]
     Route: 048
     Dates: start: 20100103

REACTIONS (1)
  - ARTHRALGIA [None]
